FAERS Safety Report 15448546 (Version 2)
Quarter: 2018Q4

REPORT INFORMATION
  Report Type: Spontaneous
  Country: US (occurrence: US)
  Receive Date: 20180929
  Receipt Date: 20181003
  Transmission Date: 20190204
  Serious: Yes (Death, Hospitalization, Other)
  Sender: FDA-Public Use
  Company Number: US-ELI_LILLY_AND_COMPANY-US201809008663

PATIENT
  Age: 58 Year
  Sex: Male

DRUGS (10)
  1. AMBRISENTAN [Concomitant]
     Active Substance: AMBRISENTAN
     Dosage: 5 MG, DAILY
     Route: 065
     Dates: start: 20180306
  2. CHLORHEXIDINE [Concomitant]
     Active Substance: CHLORHEXIDINE
     Dosage: UNK, UNKNOWN
     Route: 065
  3. AMBRISENTAN [Concomitant]
     Active Substance: AMBRISENTAN
     Dosage: 10 MG, DAILY
     Route: 065
     Dates: start: 20180306
  4. PROSTACYCLIN [Concomitant]
     Active Substance: EPOPROSTENOL
     Dosage: UNK, UNKNOWN
     Route: 048
  5. TADALAFIL. [Suspect]
     Active Substance: TADALAFIL
     Indication: PRODUCT USED FOR UNKNOWN INDICATION
     Dosage: UNK, UNKNOWN
     Route: 048
  6. UPTRAVI [Concomitant]
     Active Substance: SELEXIPAG
     Dosage: 400 UG, BID
     Route: 065
  7. REMODULIN [Concomitant]
     Active Substance: TREPROSTINIL
     Dosage: 19 NG/KG/MIN
     Route: 065
  8. ADCIRCA [Concomitant]
     Active Substance: TADALAFIL
     Dosage: UNK, UNKNOWN
     Route: 065
  9. UPTRAVI [Concomitant]
     Active Substance: SELEXIPAG
     Dosage: 800 UG, UNKNOWN
     Route: 065
  10. REMODULIN [Concomitant]
     Active Substance: TREPROSTINIL
     Dosage: 18 NG/KG/MIN
     Route: 065

REACTIONS (35)
  - Myalgia [Not Recovered/Not Resolved]
  - Pain in extremity [Not Recovered/Not Resolved]
  - Death [Fatal]
  - Syncope [Unknown]
  - Infusion site rash [Not Recovered/Not Resolved]
  - Anxiety [Not Recovered/Not Resolved]
  - Rash [Not Recovered/Not Resolved]
  - Oxygen saturation decreased [Not Recovered/Not Resolved]
  - Infusion site discharge [Unknown]
  - Pain in extremity [Not Recovered/Not Resolved]
  - Feeling abnormal [Not Recovered/Not Resolved]
  - Nausea [Not Recovered/Not Resolved]
  - Malaise [Not Recovered/Not Resolved]
  - Vascular device infection [Unknown]
  - Injection site extravasation [Not Recovered/Not Resolved]
  - Muscle spasms [Unknown]
  - Confusional state [Not Recovered/Not Resolved]
  - Fatigue [Not Recovered/Not Resolved]
  - Nausea [Recovering/Resolving]
  - Product dose omission [Unknown]
  - Gait disturbance [Not Recovered/Not Resolved]
  - Burning sensation [Not Recovered/Not Resolved]
  - Blood creatinine increased [Not Recovered/Not Resolved]
  - Oedema [Not Recovered/Not Resolved]
  - Insomnia [Not Recovered/Not Resolved]
  - Somnolence [Not Recovered/Not Resolved]
  - Peripheral swelling [Unknown]
  - Dyspnoea [Not Recovered/Not Resolved]
  - Abdominal distension [Not Recovered/Not Resolved]
  - Asthenia [Not Recovered/Not Resolved]
  - Restless legs syndrome [Not Recovered/Not Resolved]
  - Dyspnoea exertional [Not Recovered/Not Resolved]
  - Clostridium difficile infection [Recovering/Resolving]
  - Injection site pruritus [Not Recovered/Not Resolved]
  - Feeling cold [Not Recovered/Not Resolved]

NARRATIVE: CASE EVENT DATE: 201803
